FAERS Safety Report 4676644-9 (Version None)
Quarter: 2005Q2

REPORT INFORMATION
  Report Type: 
  Country: None (occurrence: None)
  Receive Date: 20050527
  Receipt Date: 20050518
  Transmission Date: 20051028
  Serious: Yes (Other)
  Sender: FDA-Public Use
  Company Number: BR-ROCHE-405260

PATIENT
  Age: 20 Year
  Sex: Female

DRUGS (1)
  1. ROACUTAN [Suspect]
     Indication: ACNE
     Route: 048
     Dates: start: 20040615, end: 20050407

REACTIONS (4)
  - CERVICITIS [None]
  - ESCHERICHIA INFECTION [None]
  - HAEMORRHAGE [None]
  - IMPAIRED HEALING [None]
